FAERS Safety Report 5755360-6 (Version None)
Quarter: 2008Q2

REPORT INFORMATION
  Report Type: 
  Country: None (occurrence: None)
  Receive Date: 20080602
  Receipt Date: 20080526
  Transmission Date: 20081010
  Serious: Yes (Other)
  Sender: FDA-Public Use
  Company Number: BE-AVENTIS-200812455EU

PATIENT
  Age: 73 Year
  Sex: Female

DRUGS (6)
  1. ENOXAPARIN SODIUM [Suspect]
     Route: 058
  2. TICLOPIDINE HCL [Suspect]
     Route: 048
  3. ASPIRIN [Suspect]
     Route: 042
  4. ASPIRIN [Suspect]
     Route: 048
  5. BUPIVACAINE [Concomitant]
  6. SUFENTANIL CITRATE [Concomitant]

REACTIONS (2)
  - HAEMATOMA [None]
  - HAEMORRHAGE INTRACRANIAL [None]
